FAERS Safety Report 8085606-3 (Version None)
Quarter: 2012Q1

REPORT INFORMATION
  Report Type: 
  Country: None (occurrence: None)
  Receive Date: 20120128
  Receipt Date: 20110403
  Transmission Date: 20120608
  Serious: No
  Sender: FDA-Public Use
  Company Number: US-ABBOTT-11P-163-0716040-00

PATIENT
  Age: 76 Year
  Sex: Male

DRUGS (10)
  1. ASPIRIN [Concomitant]
     Indication: PROPHYLAXIS
     Dosage: 81MG DAILY
  2. HUMIRA [Suspect]
     Indication: RHEUMATOID ARTHRITIS
     Dates: start: 20080401, end: 20090401
  3. HUMIRA [Suspect]
     Dates: start: 20100401
  4. SIMVASTATIN [Concomitant]
     Indication: BLOOD CHOLESTEROL
     Dosage: 80MG DAILY
  5. LOSARTAN POTASSIUM [Concomitant]
     Indication: BLOOD PRESSURE
     Dosage: 25MG DAILY
  6. BUPROPION HYDROCHLORIDE [Concomitant]
     Indication: DEPRESSION
     Dosage: 100MG DAILY
  7. METOPROLOL TARTRATE [Concomitant]
     Indication: BLOOD PRESSURE
  8. AMLODIPINE [Concomitant]
     Indication: HEART RATE
     Dosage: 5MG DAILY
  9. FOLIC ACID [Concomitant]
     Indication: ANAEMIA PROPHYLAXIS
     Dosage: 1MG DAILY
  10. OMEPRAZOLE [Concomitant]
     Indication: GASTROOESOPHAGEAL REFLUX DISEASE
     Dosage: 20MG DAILY

REACTIONS (2)
  - INJECTION SITE HAEMORRHAGE [None]
  - BACTERIAL INFECTION [None]
